FAERS Safety Report 9154679 (Version 1)
Quarter: 2013Q1

REPORT INFORMATION
  Report Type: Spontaneous
  Country: US (occurrence: None)
  Receive Date: 20130201
  Receipt Date: 20130201
  Transmission Date: 20140127
  Serious: Yes (Other)
  Sender: FDA-Public Use
  Company Number: US-JNJFOC-20130112871

PATIENT
  Sex: 0

DRUGS (2)
  1. DECITABINE [Suspect]
     Indication: MYELODYSPLASTIC SYNDROME
  2. CHEMOTHERAPY [Suspect]
     Indication: MYELODYSPLASTIC SYNDROME

REACTIONS (1)
  - Acute myeloid leukaemia [None]
